FAERS Safety Report 17026211 (Version 6)
Quarter: 2021Q1

REPORT INFORMATION
  Report Type: Spontaneous
  Country: US (occurrence: US)
  Receive Date: 20191113
  Receipt Date: 20210114
  Transmission Date: 20210419
  Serious: Yes (Life-Threatening, Hospitalization, Other)
  Sender: FDA-Public Use
  Company Number: US-PFIZER INC-2019490229

PATIENT
  Age: 59 Year
  Sex: Female
  Weight: 65.77 kg

DRUGS (4)
  1. LYRICA [Suspect]
     Active Substance: PREGABALIN
     Indication: MULTIPLE SCLEROSIS
     Dosage: 225 MG, 2X/DAY
     Route: 048
     Dates: start: 2001
  2. ASPIRINE [Concomitant]
     Active Substance: ASPIRIN
     Indication: PROPHYLAXIS
     Dosage: 325 MG, 2X/DAY
     Route: 048
     Dates: start: 201910
  3. LYRICA [Suspect]
     Active Substance: PREGABALIN
     Indication: PAIN IN EXTREMITY
  4. LOVENOX [Concomitant]
     Active Substance: ENOXAPARIN SODIUM
     Indication: PROPHYLAXIS
     Dosage: UNK (40MG PER 0.4ML SINGLE DOSE SYRINGES)
     Dates: start: 201910

REACTIONS (6)
  - Arthralgia [Unknown]
  - Cardiac arrest [Recovered/Resolved]
  - Muscle injury [Recovering/Resolving]
  - Intracranial aneurysm [Recovered/Resolved]
  - Visual impairment [Unknown]
  - Thinking abnormal [Unknown]

NARRATIVE: CASE EVENT DATE: 2015
